FAERS Safety Report 7137330-9 (Version None)
Quarter: 2010Q4

REPORT INFORMATION
  Report Type: 
  Country: None (occurrence: None)
  Receive Date: 20101206
  Receipt Date: 20090110
  Transmission Date: 20110411
  Serious: Yes (Death)
  Sender: FDA-Public Use
  Company Number: US-ACTELION-A-US2008-19173

PATIENT

DRUGS (2)
  1. TRACLEER [Suspect]
     Indication: PULMONARY ARTERIAL HYPERTENSION
     Route: 048
     Dates: start: 20071120
  2. SILDENAFIL CITRATE [Concomitant]

REACTIONS (2)
  - ABDOMINAL DISCOMFORT [None]
  - DEATH [None]
